FAERS Safety Report 4607144-X (Version None)
Quarter: 2005Q1

REPORT INFORMATION
  Report Type: 
  Country: None (occurrence: None)
  Receive Date: 20050309
  Receipt Date: 20050228
  Transmission Date: 20050727
  Serious: Yes (Hospitalization)
  Sender: FDA-Public Use
  Company Number: US-2005-002915

PATIENT
  Age: 56 Year
  Sex: Female

DRUGS (6)
  1. BETASERON [Suspect]
     Indication: MULTIPLE SCLEROSIS
     Dosage: 8 MIU, EVERY 2D, SUBCUTANEOUS
     Route: 058
     Dates: start: 20041227
  2. PLENDIL [Concomitant]
  3. CLONAZEPAM [Concomitant]
  4. NORTRIPTYLINE HCL [Concomitant]
  5. ALBUTEROL [Concomitant]
  6. CORTICOSTEROIDS [Concomitant]

REACTIONS (3)
  - ASTHMA [None]
  - CHEST DISCOMFORT [None]
  - CONDITION AGGRAVATED [None]
